FAERS Safety Report 7107698-8 (Version None)
Quarter: 2010Q4

REPORT INFORMATION
  Report Type: 
  Country: None (occurrence: None)
  Receive Date: 20101117
  Receipt Date: 20101105
  Transmission Date: 20110411
  Serious: Yes (Other)
  Sender: FDA-Public Use
  Company Number: US-JNJFOC-20100604218

PATIENT
  Sex: Male

DRUGS (3)
  1. LEVAQUIN [Suspect]
     Indication: POST PROCEDURAL PNEUMONIA
     Route: 048
  2. LEVAQUIN [Suspect]
     Indication: BACTERIAL INFECTION
     Route: 048
  3. METHYLPREDNISOLONE [Suspect]
     Indication: ANALGESIC THERAPY
     Route: 065

REACTIONS (16)
  - ARTHRALGIA [None]
  - BURSITIS [None]
  - CARTILAGE INJURY [None]
  - GAIT DISTURBANCE [None]
  - JOINT INJURY [None]
  - LIGAMENT DISORDER [None]
  - OSTEOARTHRITIS [None]
  - PAIN IN EXTREMITY [None]
  - PERIARTHRITIS [None]
  - RHEUMATOID ARTHRITIS [None]
  - ROTATOR CUFF SYNDROME [None]
  - SYNOVITIS [None]
  - TENDON DISORDER [None]
  - TENDON RUPTURE [None]
  - TENDONITIS [None]
  - TENOSYNOVITIS STENOSANS [None]
